FAERS Safety Report 5074662-2 (Version None)
Quarter: 2006Q3

REPORT INFORMATION
  Report Type: 
  Country: None (occurrence: None)
  Receive Date: 20060808
  Receipt Date: 20060531
  Transmission Date: 20061208
  Serious: Yes (Hospitalization)
  Sender: FDA-Public Use
  Company Number: FR-SANOFI-SYNTHELABO-A02200601440

PATIENT
  Sex: Female

DRUGS (3)
  1. ATORVASTATIN CALCIUM [Concomitant]
     Indication: LOW DENSITY LIPOPROTEIN INCREASED
     Route: 048
     Dates: start: 20060301, end: 20060528
  2. PLAQUENIL [Suspect]
     Indication: MUSCULOSKELETAL PAIN
     Route: 048
     Dates: start: 20050501, end: 20060528
  3. PLAQUENIL [Suspect]
     Dosage: 400 MG
     Route: 048
     Dates: start: 20060615

REACTIONS (4)
  - GAIT DISTURBANCE [None]
  - MULTIPLE SCLEROSIS [None]
  - MUSCULAR WEAKNESS [None]
  - PARAESTHESIA [None]
